FAERS Safety Report 4390274-8 (Version None)
Quarter: 2004Q2

REPORT INFORMATION
  Report Type: 
  Country: None (occurrence: None)
  Receive Date: 20040630
  Receipt Date: 20040614
  Transmission Date: 20050107
  Serious: Yes (Hospitalization)
  Sender: FDA-Public Use
  Company Number: 171833

PATIENT
  Age: 56 Year
  Sex: Female
  Weight: 81.6475 kg

DRUGS (3)
  1. AVONEX [Suspect]
     Indication: MULTIPLE SCLEROSIS
     Dosage: 30 MCG QW IM
     Route: 030
     Dates: start: 20030110, end: 20030214
  2. COZAAR [Concomitant]
  3. BACLOFEN [Concomitant]

REACTIONS (5)
  - APRAXIA [None]
  - ASTHENIA [None]
  - COMA [None]
  - FALL [None]
  - MEMORY IMPAIRMENT [None]
